FAERS Safety Report 9641309 (Version 1)
Quarter: 2013Q4

REPORT INFORMATION
  Report Type: Spontaneous
  Country: FR (occurrence: FR)
  Receive Date: 20131023
  Receipt Date: 20131023
  Transmission Date: 20140711
  Serious: Yes (Hospitalization)
  Sender: FDA-Public Use
  Company Number: FR-SA-2013SA104205

PATIENT
  Age: 51 Year
  Sex: Female

DRUGS (7)
  1. LOVENOX [Suspect]
     Indication: ISCHAEMIC STROKE
     Route: 058
     Dates: start: 20130712, end: 20130712
  2. LOVENOX [Suspect]
     Indication: ISCHAEMIC STROKE
     Dosage: FREQ. TWICE
     Route: 058
     Dates: start: 20130713, end: 20130722
  3. INEXIUM [Suspect]
     Indication: PRODUCT USED FOR UNKNOWN INDICATION
     Route: 048
     Dates: start: 20130713, end: 20130718
  4. SIMVASTATIN [Suspect]
     Indication: PRODUCT USED FOR UNKNOWN INDICATION
     Route: 048
     Dates: start: 20130713, end: 20130718
  5. EUPANTOL [Concomitant]
     Route: 048
     Dates: start: 20130712, end: 20130712
  6. LEVOTHYROX [Concomitant]
     Indication: HYPOTHYROIDISM
     Route: 048
  7. LUTENYL [Concomitant]
     Indication: UTERINE LEIOMYOMA
     Route: 048

REACTIONS (1)
  - Hepatitis [Recovered/Resolved]
